FAERS Safety Report 9238120 (Version 1)
Quarter: 2013Q1

REPORT INFORMATION
  Report Type: Spontaneous
  Country: US (occurrence: None)
  Receive Date: 20121106
  Receipt Date: 20121106
  Transmission Date: 20140127
  Serious: No
  Sender: FDA-Public Use
  Company Number: 1000037806

PATIENT
  Age: 74 Year
  Sex: Female

DRUGS (6)
  1. DALIRESP (ROFLUMILAST) (500 MICROGRAM, TABLETS) [Suspect]
     Indication: CHRONIC OBSTRUCTIVE PULMONARY DISEASE
     Dosage: 500 MCG (500 MCG, 1 IN 1D),ORAL
     Route: 048
     Dates: start: 20120809, end: 20120811
  2. SPIRIVA (TIOTROPIUM BROMIDE) [Concomitant]
  3. XOPENEX (LEVOSALBUTAMOL HYDROCHLORIDE) [Concomitant]
  4. DULERA (DULERA) [Concomitant]
  5. PREDNISONE (PREDNISONE) [Concomitant]
  6. HIGH BLOOD PRESSURE MEDICATION NOS (HIGH BLOOD PRESSURE MEDICATION NOS) [Concomitant]

REACTIONS (3)
  - Dyspnoea [None]
  - Restlessness [None]
  - Insomnia [None]
